FAERS Safety Report 8554247-3 (Version None)
Quarter: 2012Q3

REPORT INFORMATION
  Report Type: 
  Country: None (occurrence: None)
  Receive Date: 20120731
  Receipt Date: 20120716
  Transmission Date: 20120928
  Serious: Yes (Other)
  Sender: FDA-Public Use
  Company Number: US-ARROW-2012-13128

PATIENT
  Age: 87 Year
  Sex: Male

DRUGS (2)
  1. PREDNISONE TAB [Suspect]
     Indication: RETINAL VASCULAR OCCLUSION
     Dosage: 60 MG, DAILY
     Route: 048
  2. CORTICOSTEROIDS [Suspect]
     Indication: IRITIS
     Dosage: UNK
     Route: 061

REACTIONS (2)
  - NECROTISING RETINITIS [None]
  - RETINAL VASCULAR OCCLUSION [None]
